FAERS Safety Report 6212346-5 (Version None)
Quarter: 2009Q2

REPORT INFORMATION
  Report Type: 
  Country: None (occurrence: None)
  Receive Date: 20090529
  Receipt Date: 20090515
  Transmission Date: 20091009
  Serious: Yes (Hospitalization)
  Sender: FDA-Public Use
  Company Number: 2009001494

PATIENT
  Age: 56 Year
  Sex: Male

DRUGS (6)
  1. ERLOTINIB(ERLOTINIB) (TABLET) (ERLOTINIB) [Suspect]
     Indication: PANCREATIC CARCINOMA METASTATIC
     Dosage: (150 MG,QD),ORAL ; (150 MG,QD),ORAL ; (250 MG,QD),ORAL
     Route: 048
     Dates: start: 20081015, end: 20081121
  2. ERLOTINIB(ERLOTINIB) (TABLET) (ERLOTINIB) [Suspect]
     Indication: PANCREATIC CARCINOMA METASTATIC
     Dosage: (150 MG,QD),ORAL ; (150 MG,QD),ORAL ; (250 MG,QD),ORAL
     Route: 048
     Dates: start: 20081124, end: 20081217
  3. ERLOTINIB(ERLOTINIB) (TABLET) (ERLOTINIB) [Suspect]
     Indication: PANCREATIC CARCINOMA METASTATIC
     Dosage: (150 MG,QD),ORAL ; (150 MG,QD),ORAL ; (250 MG,QD),ORAL
     Route: 048
     Dates: start: 20081219
  4. GEMCITABINE [Suspect]
     Dosage: (1760 MG,QW),INTRAVENOUS
     Route: 042
     Dates: start: 20081015, end: 20081210
  5. IBUPROFEN [Concomitant]
  6. LYSERGIDE(LYSERGIDE) [Concomitant]

REACTIONS (10)
  - ABDOMINAL PAIN [None]
  - BILIRUBIN CONJUGATED INCREASED [None]
  - BLOOD BILIRUBIN INCREASED [None]
  - BLOOD CHLORIDE DECREASED [None]
  - BLOOD CREATININE DECREASED [None]
  - BLOOD UREA DECREASED [None]
  - HAEMOGLOBIN DECREASED [None]
  - PLATELET COUNT INCREASED [None]
  - STENT OCCLUSION [None]
  - STENT RELATED INFECTION [None]
